FAERS Safety Report 7041661-0 (Version None)
Quarter: 2010Q4

REPORT INFORMATION
  Report Type: 
  Country: None (occurrence: None)
  Receive Date: 20101013
  Receipt Date: 20100528
  Transmission Date: 20110411
  Serious: No
  Sender: FDA-Public Use
  Company Number: US-ASTRAZENECA-2010SE24916

PATIENT
  Age: 18951 Day
  Sex: Female
  Weight: 88 kg

DRUGS (4)
  1. SYMBICORT [Suspect]
     Dosage: 160/4.5 UG TWO PUFFS TWO TIMES A DAY
     Route: 055
     Dates: start: 20100501
  2. DIOVAN [Concomitant]
  3. EFFEXOR [Concomitant]
  4. CHANTIX [Concomitant]

REACTIONS (1)
  - CHEST DISCOMFORT [None]
